FAERS Safety Report 24666983 (Version 2)
Quarter: 2024Q4

REPORT INFORMATION
  Report Type: Spontaneous
  Country: US (occurrence: US)
  Receive Date: 20241126
  Receipt Date: 20241202
  Transmission Date: 20250115
  Serious: Yes (Hospitalization)
  Sender: PFIZER
  Company Number: US-MLMSERVICE-20241115-PI258561-00053-1

PATIENT
  Age: 49 Year
  Sex: Male

DRUGS (6)
  1. AMPICILLIN SODIUM\SULBACTAM SODIUM [Suspect]
     Active Substance: AMPICILLIN SODIUM\SULBACTAM SODIUM
     Indication: Disseminated tuberculosis
     Dosage: 3 G, 3X/DAY(HIGH-DOSE)
     Route: 042
  2. AMPICILLIN SODIUM\SULBACTAM SODIUM [Suspect]
     Active Substance: AMPICILLIN SODIUM\SULBACTAM SODIUM
     Indication: Tuberculosis
  3. MEROPENEM [Suspect]
     Active Substance: MEROPENEM
     Indication: Disseminated tuberculosis
     Dosage: 2 G, 3X/DAY
  4. MEROPENEM [Suspect]
     Active Substance: MEROPENEM
     Indication: Tuberculosis
  5. LINEZOLID [Concomitant]
     Active Substance: LINEZOLID
     Indication: Disseminated tuberculosis
     Dosage: UNK
     Route: 042
  6. MOXIFLOXACIN [Concomitant]
     Active Substance: MOXIFLOXACIN
     Indication: Disseminated tuberculosis
     Dosage: UNK
     Route: 042

REACTIONS (2)
  - Hypokalaemia [Recovered/Resolved]
  - Off label use [Unknown]
